FAERS Safety Report 5814455-9 (Version None)
Quarter: 2008Q3

REPORT INFORMATION
  Report Type: 
  Country: None (occurrence: None)
  Receive Date: 20080718
  Receipt Date: 20080715
  Transmission Date: 20090109
  Serious: Yes (Other)
  Sender: FDA-Public Use
  Company Number: DE-BRISTOL-MYERS SQUIBB COMPANY-14254445

PATIENT
  Age: 70 Year
  Sex: Male
  Weight: 74 kg

DRUGS (1)
  1. LITALIR CAPS 500 MG [Suspect]
     Indication: POLYCYTHAEMIA VERA
     Dosage: INTERRUPTED FOR 4 WEEKS IN 2002 AND WAS RESTARTED.DISCONTINUED AGAIN FOR 4 WEEKS IN 2008
     Route: 048
     Dates: start: 20020101

REACTIONS (3)
  - PARKINSON'S DISEASE [None]
  - RASH [None]
  - VITILIGO [None]
